FAERS Safety Report 8101496-4 (Version None)
Quarter: 2012Q1

REPORT INFORMATION
  Report Type: 
  Country: None (occurrence: None)
  Receive Date: 20120129
  Receipt Date: 20111010
  Transmission Date: 20120608
  Serious: No
  Sender: FDA-Public Use
  Company Number: US-ABBOTT-11P-163-0863066-00

PATIENT
  Age: 50 Year
  Sex: Female

DRUGS (6)
  1. METHADONE HCL [Concomitant]
     Indication: PAIN
  2. LISINOPRIL [Concomitant]
     Indication: HYPERTENSION
  3. HUMIRA [Suspect]
     Indication: PSORIATIC ARTHROPATHY
     Dosage: INITIAL DOSE
     Dates: start: 20111007
  4. NABUMETONE [Concomitant]
     Indication: ARTHRITIS
  5. METHYLIN [Concomitant]
     Indication: NARCOLEPSY
  6. VICODIN [Concomitant]
     Indication: PAIN

REACTIONS (2)
  - HEADACHE [None]
  - VISION BLURRED [None]
